FAERS Safety Report 10703717 (Version 8)
Quarter: 2015Q1

REPORT INFORMATION
  Report Type: Spontaneous
  Country: CN (occurrence: None)
  Receive Date: 20150108
  Receipt Date: 20150309
  Transmission Date: 20150721
  Serious: Yes (Other)
  Sender: FDA-Public Use
  Company Number: CN2014GSK045198

PATIENT
  Age: 31 Year
  Sex: Male

DRUGS (6)
  1. INTERFERON NOS [Suspect]
     Active Substance: INTERFERON
     Indication: HEPATITIS B
  2. HEPTODIN [Suspect]
     Active Substance: LAMIVUDINE
     Indication: HEPATITIS B
     Dosage: 1 DF, 1D
     Route: 048
     Dates: start: 200505
  3. HEPSERA [Suspect]
     Active Substance: ADEFOVIR DIPIVOXIL
     Indication: ACQUIRED IMMUNODEFICIENCY SYNDROME
     Route: 048
     Dates: start: 2007, end: 201405
  4. HEPTODIN [Suspect]
     Active Substance: LAMIVUDINE
     Indication: ACQUIRED IMMUNODEFICIENCY SYNDROME
     Dosage: 1 DF, 1D
     Route: 048
     Dates: start: 200505
  5. INTERFERON NOS [Suspect]
     Active Substance: INTERFERON
     Indication: ACQUIRED IMMUNODEFICIENCY SYNDROME
  6. HEPSERA [Suspect]
     Active Substance: ADEFOVIR DIPIVOXIL
     Indication: HEPATITIS B
     Route: 048
     Dates: start: 2007, end: 201405

REACTIONS (42)
  - Infertility male [None]
  - Herpes zoster [None]
  - Blood bilirubin increased [None]
  - Headache [None]
  - White blood cell count decreased [None]
  - Erectile dysfunction [None]
  - Schizophrenia [None]
  - Self-medication [None]
  - Productive cough [None]
  - Premature ejaculation [None]
  - Viral mutation identified [None]
  - Urethral haemorrhage [None]
  - Depression [None]
  - Decreased appetite [None]
  - Viral infection [None]
  - Confusional state [None]
  - Hepatitis B [None]
  - Gastrointestinal haemorrhage [None]
  - Joint swelling [None]
  - Overdose [None]
  - Blood thrombin increased [None]
  - Adverse event [None]
  - Alopecia [None]
  - Viral load increased [None]
  - Peritoneal disorder [None]
  - Mouth haemorrhage [None]
  - Colour blindness [None]
  - Dysphonia [None]
  - Macule [None]
  - Laboratory test abnormal [None]
  - Chest discomfort [None]
  - Nausea [None]
  - Gastric pH decreased [None]
  - Oral candidiasis [None]
  - Alanine aminotransferase increased [None]
  - Haemorrhage subcutaneous [None]
  - Haematemesis [None]
  - Pyrexia [None]
  - Nasopharyngitis [None]
  - Dyspnoea [None]
  - Night blindness [None]
  - Liver disorder [None]

NARRATIVE: CASE EVENT DATE: 2007
